FAERS Safety Report 5142141-X (Version None)
Quarter: 2006Q4

REPORT INFORMATION
  Report Type: 
  Country: None (occurrence: None)
  Receive Date: 20061027
  Receipt Date: 20061016
  Transmission Date: 20070319
  Serious: Yes (Death)
  Sender: FDA-Public Use
  Company Number: 2006128690

PATIENT
  Age: 49 Year
  Sex: Male

DRUGS (2)
  1. XANAX [Suspect]
     Indication: INSOMNIA
     Dosage: ORAL
     Route: 048
     Dates: end: 20060916
  2. ROBITUSSIN [Suspect]
     Indication: NASOPHARYNGITIS
     Dosage: SEVERAL SPOONFULS, ORAL
     Route: 048
     Dates: end: 20060916

REACTIONS (1)
  - MYOCARDIAL INFARCTION [None]
